FAERS Safety Report 20340126 (Version 1)
Quarter: 2022Q1

REPORT INFORMATION
  Report Type: Spontaneous
  Country: JP (occurrence: JP)
  Receive Date: 20220117
  Receipt Date: 20220117
  Transmission Date: 20220423
  Serious: Yes (Hospitalization, Other)
  Sender: FDA-Public Use
  Company Number: JP-MLMSERVICE-20211208-3250131-1

PATIENT
  Age: 4 Month
  Sex: Female
  Weight: 3.74 kg

DRUGS (1)
  1. VANCOMYCIN [Suspect]
     Active Substance: VANCOMYCIN
     Indication: Device related infection
     Route: 042

REACTIONS (2)
  - Administration site extravasation [Unknown]
  - Joint swelling [Recovered/Resolved]
